FAERS Safety Report 9432472 (Version 1)
Quarter: 2013Q3

REPORT INFORMATION
  Report Type: Spontaneous
  Country: US (occurrence: US)
  Receive Date: 20130731
  Receipt Date: 20130731
  Transmission Date: 20140515
  Serious: Yes (Other)
  Sender: FDA-Public Use
  Company Number: US-JNJFOC-20130714601

PATIENT
  Age: 63 Year
  Sex: Female
  Weight: 95.26 kg

DRUGS (5)
  1. ULTRAM [Suspect]
     Indication: PAIN
     Route: 048
     Dates: start: 2013, end: 2013
  2. AMITRIPTYLINE [Suspect]
     Indication: SWELLING
     Route: 065
     Dates: start: 2013
  3. LAMICTAL [Concomitant]
     Route: 065
  4. TEGRETOL [Concomitant]
     Route: 065
  5. OXYCODONE [Concomitant]
     Route: 065

REACTIONS (10)
  - Angioedema [Not Recovered/Not Resolved]
  - Anaesthesia dolorosa [Not Recovered/Not Resolved]
  - Weight decreased [Not Recovered/Not Resolved]
  - Pain [Not Recovered/Not Resolved]
  - Blood pressure increased [Not Recovered/Not Resolved]
  - Malaise [Unknown]
  - Temperature intolerance [Not Recovered/Not Resolved]
  - Eating disorder [Not Recovered/Not Resolved]
  - Emotional disorder [Unknown]
  - Medication error [Unknown]
